FAERS Safety Report 5080754-4 (Version None)
Quarter: 2006Q3

REPORT INFORMATION
  Report Type: 
  Country: None (occurrence: None)
  Receive Date: 20060809
  Receipt Date: 20060727
  Transmission Date: 20061208
  Serious: Yes (Life-Threatening, Hospitalization, Disabling)
  Sender: FDA-Public Use
  Company Number: 2006090575

PATIENT
  Age: 55 Year
  Sex: Male

DRUGS (6)
  1. ZYVOX [Suspect]
     Indication: STAPHYLOCOCCAL SEPSIS
     Dosage: 1200 MG (600 MG, 2 IN 1 D), INTRAVENOUS
     Route: 042
     Dates: start: 20060712, end: 20060717
  2. FINIBAX (DORIPENEM) [Suspect]
     Indication: PSEUDOMONAS INFECTION
     Dosage: 0.5 MG (UNKNOWN), INTRAVENOUS
     Route: 042
     Dates: start: 20060712, end: 20060717
  3. REMINARON (GABEXATE MESILATE) [Suspect]
     Indication: PLATELET COUNT DECREASED
     Dosage: 1500 MG (UNKNOWN), INTRAVENOUS
     Route: 042
     Dates: start: 20060713, end: 20060727
  4. MICAFUNGIN (MICAFUNGIN) [Suspect]
     Indication: CANDIDIASIS
     Dosage: 50 MG (50 MG, 1 IN 2 D), INTRAVENOUS
     Route: 042
     Dates: start: 20060717, end: 20060727
  5. VENOGLOBULIN-I [Concomitant]
  6. TARGOCID [Concomitant]

REACTIONS (12)
  - AGRANULOCYTOSIS [None]
  - BLOOD PRESSURE DECREASED [None]
  - BONE MARROW FAILURE [None]
  - CANDIDIASIS [None]
  - CHILLS [None]
  - CONDITION AGGRAVATED [None]
  - ERYTHEMA [None]
  - PLATELET COUNT DECREASED [None]
  - PNEUMONIA [None]
  - PYREXIA [None]
  - RESPIRATORY FAILURE [None]
  - SHOCK [None]
